FAERS Safety Report 10142991 (Version 1)
Quarter: 2014Q2

REPORT INFORMATION
  Report Type: Spontaneous
  Country: GB (occurrence: None)
  Receive Date: 20140428
  Receipt Date: 20140428
  Transmission Date: 20141212
  Serious: Yes (Hospitalization)
  Sender: FDA-Public Use
  Company Number: AUR-APL-2014-04862

PATIENT
  Sex: Male
  Weight: 129 kg

DRUGS (2)
  1. METFORMIN (METFORMIN) [Suspect]
     Indication: TYPE 2 DIABETES MELLITUS
  2. VICTOZA (LIRAGLUTIDE) [Suspect]
     Indication: PRODUCT USED FOR UNKNOWN INDICATION
     Dates: start: 20120303, end: 201203

REACTIONS (4)
  - Hypoglycaemia [None]
  - Alanine aminotransferase increased [None]
  - Pneumonia [None]
  - Cardiac disorder [None]
